FAERS Safety Report 23788095 (Version 1)
Quarter: 2024Q2

REPORT INFORMATION
  Report Type: Spontaneous
  Country: US (occurrence: US)
  Receive Date: 20240426
  Receipt Date: 20240426
  Transmission Date: 20240716
  Serious: No
  Sender: FDA-Public Use
  Company Number: US-TARO PHARMACEUTICALS USA INC.-2023TAR01306

PATIENT

DRUGS (2)
  1. FLUOROURACIL [Suspect]
     Active Substance: FLUOROURACIL
     Indication: Precancerous cells present
     Dosage: UNK,TWICE A DAY
     Route: 061
     Dates: start: 202302
  2. FLUOROURACIL [Suspect]
     Active Substance: FLUOROURACIL
     Indication: Rash macular

REACTIONS (1)
  - Drug ineffective [Unknown]
